FAERS Safety Report 5126289-1 (Version None)
Quarter: 2006Q4

REPORT INFORMATION
  Report Type: 
  Country: None (occurrence: None)
  Receive Date: 20061012
  Receipt Date: 20061005
  Transmission Date: 20070319
  Serious: Yes (Hospitalization)
  Sender: FDA-Public Use
  Company Number: GB-MERCK-0610GBR00069

PATIENT
  Age: 74 Year
  Sex: Male

DRUGS (5)
  1. ZOCOR [Suspect]
     Indication: BLOOD CHOLESTEROL INCREASED
     Route: 048
     Dates: end: 20060407
  2. ZOCOR [Suspect]
     Route: 048
     Dates: start: 20060407, end: 20060501
  3. GABAPENTIN [Concomitant]
     Indication: SCIATICA
     Route: 048
     Dates: start: 20060407, end: 20060501
  4. GLICLAZIDE [Concomitant]
     Indication: DIABETES MELLITUS
     Route: 048
     Dates: start: 19980101
  5. METFORMIN [Concomitant]
     Indication: DIABETES MELLITUS
     Route: 048
     Dates: start: 19980528, end: 20060501

REACTIONS (5)
  - CHOLELITHIASIS [None]
  - JAUNDICE CHOLESTATIC [None]
  - MYOPATHY [None]
  - RENAL FAILURE [None]
  - RHABDOMYOLYSIS [None]
